FAERS Safety Report 5120086-9 (Version None)
Quarter: 2006Q3

REPORT INFORMATION
  Report Type: 
  Country: None (occurrence: None)
  Receive Date: 20060928
  Receipt Date: 20060919
  Transmission Date: 20061208
  Serious: Yes (Hospitalization, Other)
  Sender: FDA-Public Use
  Company Number: 2006100088

PATIENT
  Age: 64 Year
  Sex: Male
  Weight: 70 kg

DRUGS (6)
  1. LIPITOR [Suspect]
     Indication: HYPERCHOLESTEROLAEMIA
     Dosage: 10 MG (10 MG, 1 IN 1 D), ORAL
     Route: 048
  2. FAMOTIDINE [Suspect]
  3. MUCOSOLVAN (AMBROXOL HYDROCHLORIDE) [Suspect]
     Dosage: ORAL
     Route: 048
  4. GASCON (DIMETICONE) [Suspect]
     Dosage: ORAL
     Route: 048
  5. VITANEURIN (THIAMINE HYDROCHLORIDE) [Suspect]
     Dosage: ORAL
     Route: 048
  6. CONIEL (BENIDIPINE HYDROCHLORIDE) [Concomitant]

REACTIONS (2)
  - HEPATIC STEATOSIS [None]
  - HEPATITIS ACUTE [None]
